FAERS Safety Report 10241666 (Version 2)
Quarter: 2014Q2

REPORT INFORMATION
  Report Type: Spontaneous
  Country: US (occurrence: None)
  Receive Date: 20140613
  Receipt Date: 20140620
  Transmission Date: 20141212
  Serious: Yes (Hospitalization, Other)
  Sender: FDA-Public Use
  Company Number: UNT-2014-001575

PATIENT
  Age: 69 Year
  Sex: Female
  Weight: 51.6 kg

DRUGS (4)
  1. TYVASO (TREPROSTINIL SODIUM) INHALATION GAS, 0.6MG/ML [Suspect]
     Indication: PULMONARY ARTERIAL HYPERTENSION
     Route: 055
     Dates: start: 20120329
  2. LETAIRIS (AMBRISENTAN) [Concomitant]
  3. OXYGEN (OXYGEN) [Concomitant]
  4. LASIX /00032601/ (FUROSEMIDE) UNK, UNKUNK [Concomitant]

REACTIONS (8)
  - Cyanosis [None]
  - Presyncope [None]
  - Hypothermia [None]
  - Sepsis [None]
  - Hypotension [None]
  - Aphasia [None]
  - Oedema peripheral [None]
  - Cardiomegaly [None]
